FAERS Safety Report 25458398 (Version 5)
Quarter: 2025Q4

REPORT INFORMATION
  Report Type: Spontaneous
  Country: EU (occurrence: EU)
  Receive Date: 20250620
  Receipt Date: 20251031
  Transmission Date: 20260117
  Serious: Yes (Life-Threatening, Hospitalization, Disabling, Other)
  Sender: ALEXION PHARMACEUTICALS
  Company Number: EU-AstraZeneca-CH-00893534AM

PATIENT
  Age: 73 Year
  Sex: Female
  Weight: 74 kg

DRUGS (7)
  1. DAPAGLIFLOZIN [Suspect]
     Active Substance: DAPAGLIFLOZIN
     Indication: Type 2 diabetes mellitus
     Dosage: 10 MILLIGRAM, QD
     Route: 065
     Dates: start: 20250611, end: 20250616
  2. AMLODIPINE BESYLATE\CANDESARTAN CILEXETIL [Concomitant]
     Active Substance: AMLODIPINE BESYLATE\CANDESARTAN CILEXETIL
     Route: 065
  3. ATORVASTATIN [Concomitant]
     Active Substance: ATORVASTATIN
     Route: 065
  4. BISOPROLOL FUMARATE [Concomitant]
     Active Substance: BISOPROLOL FUMARATE
     Route: 065
  5. PANTOPRAZOLE SODIUM [Concomitant]
     Active Substance: PANTOPRAZOLE SODIUM
     Route: 065
  6. JENTADUETO [Concomitant]
     Active Substance: LINAGLIPTIN\METFORMIN HYDROCHLORIDE
     Route: 065
  7. TOUJEO [Concomitant]
     Active Substance: INSULIN GLARGINE
     Route: 065

REACTIONS (37)
  - Ketoacidosis [Not Recovered/Not Resolved]
  - Wrong product administered [Unknown]
  - Blood glucose decreased [Unknown]
  - Loss of consciousness [Unknown]
  - Syncope [Unknown]
  - Paralysis [Unknown]
  - Illness [Unknown]
  - Blood pressure abnormal [Unknown]
  - Blood pH increased [Unknown]
  - Gait disturbance [Unknown]
  - Musculoskeletal stiffness [Unknown]
  - Blood glucose abnormal [Unknown]
  - Rheumatic disorder [Unknown]
  - Nausea [Unknown]
  - Headache [Unknown]
  - Muscle discomfort [Unknown]
  - Movement disorder [Unknown]
  - Dyspnoea [Unknown]
  - Memory impairment [Unknown]
  - Dizziness [Unknown]
  - Asthenia [Unknown]
  - General physical health deterioration [Unknown]
  - Gait inability [Unknown]
  - Dysphagia [Unknown]
  - Fear of death [Unknown]
  - Somnolence [Unknown]
  - Depression [Unknown]
  - Fatigue [Unknown]
  - Pruritus [Unknown]
  - Sensation of foreign body [Unknown]
  - Product intolerance [Unknown]
  - Cough [Unknown]
  - Chest pain [Unknown]
  - Urogenital infection bacterial [Unknown]
  - Chest discomfort [Unknown]
  - Bronchitis [Unknown]
  - Hyporesponsive to stimuli [Unknown]

NARRATIVE: CASE EVENT DATE: 20250617
